FAERS Safety Report 12207490 (Version 3)
Quarter: 2016Q2

REPORT INFORMATION
  Report Type: Spontaneous
  Country: JP (occurrence: JP)
  Receive Date: 20160324
  Receipt Date: 20160520
  Transmission Date: 20160815
  Serious: Yes (Death, Other)
  Sender: FDA-Public Use
  Company Number: JP-GLAXOSMITHKLINE-JP2016JPN039874

PATIENT
  Sex: Male

DRUGS (2)
  1. FLOLAN [Suspect]
     Active Substance: EPOPROSTENOL SODIUM
     Indication: PULMONARY ARTERIAL HYPERTENSION
     Dosage: UNK
     Route: 041
  2. UNKNOWN DRUG [Concomitant]
     Active Substance: UNSPECIFIED INGREDIENT
     Dosage: UNK

REACTIONS (8)
  - Vascular malformation [Fatal]
  - Respiratory failure [Fatal]
  - Pulmonary fibrosis [Fatal]
  - Pulmonary hypertension [Not Recovered/Not Resolved]
  - Pulmonary hypertensive crisis [Fatal]
  - Oxygen saturation decreased [Not Recovered/Not Resolved]
  - Respiratory syncytial virus infection [Recovered/Resolved with Sequelae]
  - Pulmonary vascular disorder [Unknown]
